FAERS Safety Report 22310871 (Version 1)
Quarter: 2023Q2

REPORT INFORMATION
  Report Type: Spontaneous
  Country: NO (occurrence: NO)
  Receive Date: 20230511
  Receipt Date: 20230511
  Transmission Date: 20230722
  Serious: Yes (Hospitalization, Other)
  Sender: FDA-Public Use
  Company Number: None

PATIENT
  Sex: Female

DRUGS (13)
  1. BOTOX [Suspect]
     Active Substance: ONABOTULINUMTOXINA
     Indication: Cluster headache
     Dosage: 140 UNITS, SINGLE
     Route: 030
     Dates: start: 20230209, end: 20230209
  2. BOTOX [Suspect]
     Active Substance: ONABOTULINUMTOXINA
     Indication: Migraine
  3. JARDIANCE [Concomitant]
     Active Substance: EMPAGLIFLOZIN
     Indication: Diabetes mellitus
     Dosage: 10 MG, QD
     Dates: start: 202212
  4. CLONIDINE [Concomitant]
     Active Substance: CLONIDINE
     Indication: Menopause
     Dosage: 75 MCG X 3
     Dates: start: 2015
  5. CLONIDINE [Concomitant]
     Active Substance: CLONIDINE
     Indication: Post-traumatic stress disorder
  6. CLONIDINE [Concomitant]
     Active Substance: CLONIDINE
     Indication: Migraine
  7. CLONIDINE [Concomitant]
     Active Substance: CLONIDINE
     Indication: Withdrawal syndrome
  8. OXYCODONE HYDROCHLORIDE [Concomitant]
     Active Substance: OXYCODONE HYDROCHLORIDE
     Indication: Pain
     Dosage: 10 MG X 6
     Dates: start: 2014
  9. CHOLECALCIFEROL [Concomitant]
     Active Substance: CHOLECALCIFEROL
  10. ZYRTEC [Concomitant]
     Active Substance: CETIRIZINE HYDROCHLORIDE
     Indication: Hypersensitivity
     Dosage: 10 MG, QD
  11. FOLIC ACID [Concomitant]
     Active Substance: FOLIC ACID
  12. IBUPROFEN [Concomitant]
     Active Substance: IBUPROFEN
     Indication: Pain
     Dosage: 800 MG SPORADIC
  13. VITAMIN B12 [Concomitant]
     Active Substance: CYANOCOBALAMIN

REACTIONS (6)
  - Suicidal ideation [Unknown]
  - Concomitant disease aggravated [Recovering/Resolving]
  - Burning sensation [Recovering/Resolving]
  - Cluster headache [Recovering/Resolving]
  - Headache [Recovering/Resolving]
  - Migraine [Recovering/Resolving]

NARRATIVE: CASE EVENT DATE: 20230209
